FAERS Safety Report 10780163 (Version 1)
Quarter: 2015Q1

REPORT INFORMATION
  Report Type: Spontaneous
  Country: DE (occurrence: None)
  Receive Date: 20150206
  Receipt Date: 20150206
  Transmission Date: 20150721
  Serious: Yes (Other)
  Sender: FDA-Public Use
  Company Number: 2015-10364

PATIENT
  Age: 65 Year
  Sex: Male
  Weight: 103 kg

DRUGS (1)
  1. EYLEA [Suspect]
     Active Substance: AFLIBERCEPT
     Indication: MACULAR DEGENERATION
     Dosage: RECEIVED 7 INJECTION S PRIOR TO THE EVENT
     Route: 047

REACTIONS (2)
  - Blindness transient [None]
  - Visual impairment [None]

NARRATIVE: CASE EVENT DATE: 20141106
